FAERS Safety Report 5141707-0 (Version None)
Quarter: 2006Q4

REPORT INFORMATION
  Report Type: 
  Country: None (occurrence: None)
  Receive Date: 20061026
  Receipt Date: 20061023
  Transmission Date: 20070319
  Serious: Yes (Disabling)
  Sender: FDA-Public Use
  Company Number: 13480876

PATIENT
  Sex: Female

DRUGS (3)
  1. EMSAM [Suspect]
     Indication: MAJOR DEPRESSION
     Dosage: 6 MILLIGRAM, 1/24 HOUR TD
     Route: 062
     Dates: start: 20060811, end: 20060812
  2. BENICAR [Concomitant]
  3. ACTOSE [Concomitant]

REACTIONS (6)
  - CONFUSIONAL STATE [None]
  - DELUSION [None]
  - EUPHORIC MOOD [None]
  - HEADACHE [None]
  - PSYCHOTIC DISORDER [None]
  - VISUAL DISTURBANCE [None]
